FAERS Safety Report 9559787 (Version 1)
Quarter: 2013Q3

REPORT INFORMATION
  Report Type: Spontaneous
  Country: ES (occurrence: ES)
  Receive Date: 20130927
  Receipt Date: 20130927
  Transmission Date: 20140515
  Serious: Yes (Hospitalization, Other)
  Sender: FDA-Public Use
  Company Number: ES-PFIZER INC-2013276310

PATIENT
  Age: 69 Year
  Sex: Male

DRUGS (3)
  1. SOMAVERT [Suspect]
     Indication: CONJUNCTIVITIS BACTERIAL
     Dosage: UNK
     Route: 058
     Dates: start: 20130506, end: 20130507
  2. LERCADIP [Concomitant]
     Dosage: 10 MG, 1X/DAY
     Dates: start: 20060407
  3. PRITOR PLUS [Concomitant]
     Dosage: (80/12.5 MG) UNK
     Dates: start: 20031219

REACTIONS (5)
  - Tongue oedema [Recovering/Resolving]
  - Pruritus generalised [Recovering/Resolving]
  - Periorbital oedema [Recovering/Resolving]
  - Extrasystoles [Unknown]
  - Tachycardia [Unknown]
